FAERS Safety Report 8590941-6 (Version None)
Quarter: 2012Q3

REPORT INFORMATION
  Report Type: 
  Country: None (occurrence: None)
  Receive Date: 20120813
  Receipt Date: 20120803
  Transmission Date: 20120928
  Serious: Yes (Other)
  Sender: FDA-Public Use
  Company Number: CN-ABBOTT-12P-035-0965307-00

PATIENT
  Age: 6 Year
  Sex: Female

DRUGS (2)
  1. DEPAKENE [Suspect]
     Route: 048
     Dates: start: 20120601
  2. DEPAKENE [Suspect]
     Indication: EPILEPSY
     Route: 048
     Dates: start: 20060101, end: 20120601

REACTIONS (5)
  - TREMOR [None]
  - FALL [None]
  - PRODUCT COUNTERFEIT [None]
  - EPILEPSY [None]
  - CONVULSION [None]
